FAERS Safety Report 8462815-2 (Version None)
Quarter: 2012Q2

REPORT INFORMATION
  Report Type: 
  Country: None (occurrence: None)
  Receive Date: 20120625
  Receipt Date: 20120615
  Transmission Date: 20120825
  Serious: Yes (Hospitalization)
  Sender: FDA-Public Use
  Company Number: PHFR2012GB003479

PATIENT
  Age: 78 Year
  Sex: Male

DRUGS (3)
  1. PRAVASTATIN [Suspect]
     Dates: start: 20120221
  2. RIVASTIGMINE [Suspect]
     Route: 048
     Dates: start: 20120502
  3. METFORMIN HCL [Suspect]
     Dates: start: 20120221

REACTIONS (3)
  - BRADYCARDIA [None]
  - EXTRASYSTOLES [None]
  - FALL [None]
